FAERS Safety Report 16748594 (Version 3)
Quarter: 2019Q4

REPORT INFORMATION
  Report Type: Spontaneous
  Country: US (occurrence: US)
  Receive Date: 20190828
  Receipt Date: 20191010
  Transmission Date: 20200122
  Serious: No
  Sender: FDA-Public Use
  Company Number: US-JNJFOC-20190832525

PATIENT
  Age: 57 Year
  Sex: Female
  Weight: 59.02 kg

DRUGS (1)
  1. MENS ROGAINE EXTRA STRENGTH [Suspect]
     Active Substance: MINOXIDIL
     Indication: ALOPECIA AREATA
     Dosage: USE 2 PUMPS EACH USE BEFORE BED NIGHTLY
     Route: 061
     Dates: start: 2009

REACTIONS (4)
  - Off label use [Unknown]
  - Product use in unapproved indication [Unknown]
  - Product container issue [Unknown]
  - Product use issue [Unknown]

NARRATIVE: CASE EVENT DATE: 2009
